FAERS Safety Report 10879987 (Version 1)
Quarter: 2015Q1

REPORT INFORMATION
  Report Type: Report from Study
  Country: BR (occurrence: BR)
  Receive Date: 20150302
  Receipt Date: 20150302
  Transmission Date: 20150721
  Serious: Yes (Other)
  Sender: FDA-Public Use
  Company Number: BR-ABBVIE-15K-020-1352039-00

PATIENT
  Sex: Female
  Weight: 72 kg

DRUGS (3)
  1. HUMIRA [Suspect]
     Active Substance: ADALIMUMAB
     Indication: RHEUMATOID ARTHRITIS
     Route: 058
     Dates: start: 20110101
  2. GLIFAGE [Concomitant]
     Active Substance: METFORMIN HYDROCHLORIDE
     Indication: DIABETES MELLITUS
     Route: 048
  3. TAPAZOL [Concomitant]
     Indication: THYROID DISORDER
     Route: 048
     Dates: start: 2012

REACTIONS (13)
  - Diabetes mellitus [Recovered/Resolved]
  - Thyroid disorder [Recovered/Resolved]
  - Gait disturbance [Unknown]
  - Synovial disorder [Recovered/Resolved]
  - Osteoarthritis [Recovered/Resolved]
  - Fatigue [Unknown]
  - Weight decreased [Unknown]
  - Post procedural complication [Unknown]
  - Weight increased [Unknown]
  - Joint swelling [Recovered/Resolved]
  - Joint effusion [Recovered/Resolved]
  - Joint swelling [Unknown]
  - Arthropathy [Unknown]

NARRATIVE: CASE EVENT DATE: 2011
